FAERS Safety Report 22301937 (Version 2)
Quarter: 2024Q2

REPORT INFORMATION
  Report Type: Report from Study
  Country: BR (occurrence: BR)
  Receive Date: 20230510
  Receipt Date: 20240404
  Transmission Date: 20240715
  Serious: Yes (Other)
  Sender: FDA-Public Use
  Company Number: BR-CELLTRION INC.-2023BR009553

PATIENT

DRUGS (1)
  1. INFLIXIMAB [Suspect]
     Active Substance: INFLIXIMAB
     Indication: Crohn^s disease
     Dosage: 5 AMPOULES
     Route: 042
     Dates: start: 20221027

REACTIONS (6)
  - Diarrhoea haemorrhagic [Unknown]
  - Influenza [Unknown]
  - Neuralgia [Unknown]
  - Sneezing [Unknown]
  - Abdominal pain upper [Unknown]
  - Intentional dose omission [Unknown]
